FAERS Safety Report 10047803 (Version 1)
Quarter: 2014Q1

REPORT INFORMATION
  Report Type: Spontaneous
  Country: US (occurrence: None)
  Receive Date: 20140306
  Receipt Date: 20140306
  Transmission Date: 20141002
  Serious: Yes (Other)
  Sender: FDA-Public Use
  Company Number: 163-21880-13070912

PATIENT
  Age: 67 Year
  Sex: Male

DRUGS (2)
  1. REVLIMID [Suspect]
     Indication: PRODUCT USED FOR UNKNOWN INDICATION
     Dosage: 21 IN 28 D
     Route: 048
     Dates: start: 200811, end: 200909
  2. VIDAZA (AZACITIDINE) (UNKNOWN) [Suspect]
     Indication: PRODUCT USED FOR UNKNOWN INDICATION
     Dates: start: 2009

REACTIONS (4)
  - Platelet count decreased [None]
  - Full blood count decreased [None]
  - Myelodysplastic syndrome [None]
  - Disease progression [None]
